FAERS Safety Report 21895875 (Version 1)
Quarter: 2023Q1

REPORT INFORMATION
  Report Type: Report from Study
  Country: CA (occurrence: CA)
  Receive Date: 20230123
  Receipt Date: 20230123
  Transmission Date: 20230417
  Serious: Yes (Hospitalization, Other)
  Sender: FDA-Public Use
  Company Number: CA-ABBVIE-4277572

PATIENT
  Sex: Female

DRUGS (2)
  1. HUMIRA [Suspect]
     Active Substance: ADALIMUMAB
     Indication: Ankylosing spondylitis
     Route: 058
     Dates: start: 20150417
  2. HUMIRA [Suspect]
     Active Substance: ADALIMUMAB
     Route: 058

REACTIONS (9)
  - Loss of consciousness [Unknown]
  - Fatigue [Unknown]
  - Injury [Unknown]
  - Road traffic accident [Unknown]
  - Sepsis [Unknown]
  - Plastic surgery [Unknown]
  - Wound infection [Unknown]
  - Cerebrovascular accident [Unknown]
  - Spinal operation [Unknown]
